FAERS Safety Report 19233762 (Version 3)
Quarter: 2021Q4

REPORT INFORMATION
  Report Type: Report from Study
  Country: GB (occurrence: US)
  Receive Date: 20210507
  Receipt Date: 20211124
  Transmission Date: 20220303
  Serious: Yes (Hospitalization)
  Sender: FDA-Public Use
  Company Number: GB-EXELIXIS-XL18421039982

PATIENT
  Age: 60 Year
  Sex: Male
  Weight: 81.4 kg

DRUGS (4)
  1. PLACEBO [Suspect]
     Active Substance: UNSPECIFIED INGREDIENT
     Indication: Bladder cancer
     Dosage: 40 MG, QD
     Route: 048
     Dates: start: 20210324, end: 20210428
  2. CABOZANTINIB [Suspect]
     Active Substance: CABOZANTINIB
     Indication: Bladder cancer
     Dosage: 40 MG, QD
     Route: 048
     Dates: start: 20210324, end: 20210428
  3. SODIUM BICARBONATE [Concomitant]
     Active Substance: SODIUM BICARBONATE
     Indication: Dyspepsia
     Dosage: UNK
  4. AMOXICILLIN [Concomitant]
     Active Substance: AMOXICILLIN
     Indication: Lower respiratory tract infection

REACTIONS (4)
  - Urinary tract pain [Recovered/Resolved]
  - Dyspnoea [Recovered/Resolved]
  - Fatigue [Recovered/Resolved]
  - Urosepsis [Recovered/Resolved]

NARRATIVE: CASE EVENT DATE: 20210428
